FAERS Safety Report 7715847-3 (Version None)
Quarter: 2011Q3

REPORT INFORMATION
  Report Type: 
  Country: None (occurrence: None)
  Receive Date: 20110829
  Receipt Date: 20110829
  Transmission Date: 20111222
  Serious: Yes (Other)
  Sender: FDA-Public Use
  Company Number: None

PATIENT
  Age: 63 Year
  Sex: Female
  Weight: 83.914 kg

DRUGS (1)
  1. FENTANYL-100 [Suspect]
     Indication: TENDON DISORDER
     Dosage: 25 MCG
     Route: 062
     Dates: start: 20110727, end: 20110816

REACTIONS (8)
  - NAUSEA [None]
  - INADEQUATE ANALGESIA [None]
  - HYPERHIDROSIS [None]
  - RHINORRHOEA [None]
  - PRODUCT ADHESION ISSUE [None]
  - DRUG WITHDRAWAL SYNDROME [None]
  - ANXIETY [None]
  - CRYING [None]
